FAERS Safety Report 9303544 (Version 5)
Quarter: 2014Q4

REPORT INFORMATION
  Report Type: Spontaneous
  Country: CA (occurrence: CA)
  Receive Date: 20130522
  Receipt Date: 20141023
  Transmission Date: 20150529
  Serious: Yes (Other)
  Sender: FDA-Public Use
  Company Number: CA-009507513-1305CAN012377

PATIENT
  Age: 44 Year
  Sex: Female

DRUGS (31)
  1. XYREM [Interacting]
     Active Substance: SODIUM OXYBATE
     Indication: NARCOLEPSY
     Dosage: 2.25 GRAM, 2 EVERY 1 DAYS (THERAPY DURATION 44 DAYS)
     Route: 065
  2. XYREM [Suspect]
     Active Substance: SODIUM OXYBATE
     Dosage: 3.5 G, BID(2 EVERY 1 DAY)
     Route: 048
  3. XYREM [Suspect]
     Active Substance: SODIUM OXYBATE
     Dosage: 3.75 G, 2 EVERY 1 DAY(THERAPY DURATION: 8 DAY)
     Route: 048
  4. XYREM [Suspect]
     Active Substance: SODIUM OXYBATE
     Dosage: 7.25 G(THERAPY DURATION: 3.0 DAY)
     Route: 048
  5. ALBUTEROL SULFATE. [Concomitant]
     Active Substance: ALBUTEROL SULFATE
  6. CLARITIN-D 12 HOUR [Interacting]
     Active Substance: LORATADINE\PSEUDOEPHEDRINE SULFATE
     Dosage: 1 EVERY 1 DAY
  7. XYREM [Suspect]
     Active Substance: SODIUM OXYBATE
     Dosage: 3 G, 2 EVERY 1 DAY(THERAPY DURATION: 203 DAY)
     Route: 048
  8. XYREM [Suspect]
     Active Substance: SODIUM OXYBATE
     Dosage: 3.5 G, BID(2 EVERY 1 DAY) THERAPY DURATION: 4
     Route: 048
  9. RABEPRAZOLE SODIUM. [Suspect]
     Active Substance: RABEPRAZOLE SODIUM
     Dosage: 40 MG, 2 EVERY 1 DAY
  10. XYREM [Suspect]
     Active Substance: SODIUM OXYBATE
     Dosage: 2.75 G, BID( 2 EVERY 1 DAY)THERAPY DURATION: 286
     Route: 048
  11. ALLEGRA [Suspect]
     Active Substance: FEXOFENADINE HYDROCHLORIDE
     Route: 065
  12. ALVESCO [Concomitant]
     Active Substance: CICLESONIDE
     Dosage: METERED DOSE
     Route: 055
  13. VENTOLIN [Concomitant]
     Active Substance: ALBUTEROL SULFATE
     Dosage: NOT SPECIFIED
  14. XYREM [Suspect]
     Active Substance: SODIUM OXYBATE
     Dosage: 7.25 G(THERAPY DURATION: 2 DAY)
     Route: 048
  15. XYREM [Suspect]
     Active Substance: SODIUM OXYBATE
     Dosage: 3.5 G, BID(2 EVERY 1 DAY)THERAPY DURATION: 3.0 DAY
     Route: 048
  16. CICLESONIDE [Concomitant]
     Active Substance: CICLESONIDE
  17. DEXTROAMPHETAMINE [Concomitant]
     Active Substance: DEXTROAMPHETAMINE
  18. MOMETASONE FUROATE. [Concomitant]
     Active Substance: MOMETASONE FUROATE
  19. ERGOCALCIFEROL. [Concomitant]
     Active Substance: ERGOCALCIFEROL
  20. XYREM [Suspect]
     Active Substance: SODIUM OXYBATE
     Dosage: 3.5 G, BID(2 EVERY 1 DAY)
     Route: 048
  21. ALBUTEROL. [Concomitant]
     Active Substance: ALBUTEROL
  22. RABEPRAZOLE SODIUM. [Interacting]
     Active Substance: RABEPRAZOLE SODIUM
     Dosage: 20 MG, 1 EVERY 1 DAY
     Route: 065
  23. MODAFINIL. [Concomitant]
     Active Substance: MODAFINIL
     Dosage: NOT SPECIFIED
  24. VITAMINS (UNSPECIFIED) [Concomitant]
     Active Substance: VITAMINS
     Dosage: NOT SPECIFIED
  25. CLARITIN-D 12 HOUR [Suspect]
     Active Substance: LORATADINE\PSEUDOEPHEDRINE SULFATE
     Dosage: UNK, PRN
  26. RABEPRAZOLE SODIUM. [Interacting]
     Active Substance: RABEPRAZOLE SODIUM
     Dosage: 20 MG, 1 EVERY 1 DAY
     Route: 065
  27. RABEPRAZOLE SODIUM. [Interacting]
     Active Substance: RABEPRAZOLE SODIUM
     Dosage: 20 MG, 2 EVERY 1 DAY(THERAPY DUARTION 1 MONTH)
     Route: 065
  28. XYREM [Suspect]
     Active Substance: SODIUM OXYBATE
     Dosage: 3.25 G, 2 EVERY 1 DAY
     Route: 048
  29. XYREM [Suspect]
     Active Substance: SODIUM OXYBATE
     Dosage: 7.25 G(THERAPY DURATION: 2 DAY)
     Route: 048
  30. XYREM [Suspect]
     Active Substance: SODIUM OXYBATE
     Dosage: 3.75 G, TOTAL
     Route: 048
  31. NASONEX [Concomitant]
     Active Substance: MOMETASONE FUROATE
     Dosage: SPRAY, METERED DOSE
     Route: 045

REACTIONS (23)
  - Hypoaesthesia oral [Unknown]
  - Oral discomfort [Not Recovered/Not Resolved]
  - Disorientation [Unknown]
  - Fall [Unknown]
  - Somnolence [Not Recovered/Not Resolved]
  - Memory impairment [Unknown]
  - Seizure [Unknown]
  - Product quality issue [Unknown]
  - Oral disorder [Unknown]
  - Sleep disorder [Unknown]
  - Dyskinesia [Not Recovered/Not Resolved]
  - Oedema mouth [Unknown]
  - Paralysis [Not Recovered/Not Resolved]
  - Drug interaction [Unknown]
  - Sleep talking [Unknown]
  - Paraesthesia oral [Unknown]
  - Cataplexy [Unknown]
  - Eyelid disorder [Unknown]
  - Eye disorder [Not Recovered/Not Resolved]
  - Nausea [Unknown]
  - Gait disturbance [Unknown]
  - Blindness transient [Unknown]
  - Paralysis [Unknown]

NARRATIVE: CASE EVENT DATE: 20130111
